FAERS Safety Report 7132153-9 (Version None)
Quarter: 2010Q4

REPORT INFORMATION
  Report Type: 
  Country: None (occurrence: None)
  Receive Date: 20101202
  Receipt Date: 20101125
  Transmission Date: 20110411
  Serious: Yes (Hospitalization, Disabling)
  Sender: FDA-Public Use
  Company Number: JP-MPIJNJ-2010-05030

PATIENT

DRUGS (12)
  1. VELCADE [Suspect]
     Indication: MULTIPLE MYELOMA
     Dosage: 2.04 MG, CYCLIC
     Route: 042
     Dates: start: 20100817, end: 20100827
  2. LOPEMIN [Suspect]
     Indication: DIARRHOEA
     Dosage: 1 MG, UNK
     Route: 048
     Dates: start: 20100826, end: 20100828
  3. LOPEMIN [Suspect]
     Dosage: 2 MG, UNK
     Route: 048
     Dates: start: 20100829, end: 20100830
  4. DECADRON [Suspect]
     Indication: MULTIPLE MYELOMA
     Dosage: 20 MG, UNK
     Route: 048
     Dates: start: 20100817, end: 20100828
  5. BAKTAR [Suspect]
     Indication: ANTIFUNGAL PROPHYLAXIS
     Dosage: 4 DF, UNK
     Route: 048
     Dates: start: 20100817, end: 20100903
  6. TANNALBIN [Suspect]
     Indication: DIARRHOEA
     Dosage: UNK
     Route: 048
     Dates: start: 20100829, end: 20100830
  7. ITRIZOLE [Concomitant]
     Indication: ANTIFUNGAL PROPHYLAXIS
     Dosage: 200 MG, UNK
     Route: 048
     Dates: start: 20100817, end: 20100831
  8. DIFLUCAN [Concomitant]
     Indication: ANTIFUNGAL PROPHYLAXIS
     Dosage: 200 MG, UNK
     Route: 048
     Dates: start: 20100901, end: 20100913
  9. DIFLUCAN [Concomitant]
     Dosage: 100 UNK, UNK
     Dates: start: 20100914, end: 20100918
  10. DIFLUCAN [Concomitant]
     Dosage: 200 MG, UNK
     Route: 048
     Dates: start: 20100922, end: 20100928
  11. FUNGUARD [Concomitant]
     Indication: FUNGAL INFECTION
     Dosage: 150 MG, UNK
     Route: 042
     Dates: start: 20100918, end: 20100921
  12. BLOPRESS [Concomitant]
     Indication: HYPERTENSION
     Dosage: 4 MG, UNK
     Route: 048
     Dates: start: 20100830

REACTIONS (9)
  - CYTOMEGALOVIRUS INFECTION [None]
  - DEEP VEIN THROMBOSIS [None]
  - DIARRHOEA [None]
  - HERPES SIMPLEX [None]
  - ILEUS PARALYTIC [None]
  - NEUROGENIC BLADDER [None]
  - NEUROPATHY PERIPHERAL [None]
  - THROMBOCYTOPENIA [None]
  - URETERIC RUPTURE [None]
